FAERS Safety Report 6186267-0 (Version None)
Quarter: 2009Q2

REPORT INFORMATION
  Report Type: 
  Country: None (occurrence: None)
  Receive Date: 20090507
  Receipt Date: 20090507
  Transmission Date: 20091009
  Serious: No
  Sender: FDA-Public Use
  Company Number: None

PATIENT
  Sex: Male
  Weight: 86.36 kg

DRUGS (32)
  1. MS CONTIN [Suspect]
     Dosage: 60MG TABLET SA 120 MG Q12H
     Route: 048
     Dates: start: 20090424, end: 20090506
  2. ADVAIR DISKUS 250/50 (FLUTICASONE PROPIONATE/SALMETEROL 250/50) [Concomitant]
  3. ALBUTEROL [Concomitant]
  4. ARANESP (NON-ONCOLOGY) (DARBEPOETIN ALFA (NON-ONCOLOGY)) [Concomitant]
  5. ASPIRIN (CHILDRENS) (ACETYLSALICYLIC ACI... [Concomitant]
  6. CLOTRIMAZOLE 1% TOPICAL [Concomitant]
  7. COLACE (DOCUSATE SODIUM) [Concomitant]
  8. ERYTHROMYCIN 0.5% OPHTHALMIC OINTMENT [Concomitant]
  9. FERROUS SULFATE TAB [Concomitant]
  10. FLOMAX [Concomitant]
  11. FLUOCINOLONE 0.025% CREAM [Concomitant]
  12. FUROSEMIDE [Concomitant]
  13. HUMALOG INSULIN (INSULIN LISPRO) [Concomitant]
  14. LABETALOL HCL [Concomitant]
  15. LACTULOSE [Concomitant]
  16. LIDODERM [Concomitant]
  17. LIPITOR [Concomitant]
  18. MICARDIS HCT 80 MG/25 MG (TELMISARTAN/HYDROCHLOROTHIAZIDE 80MG/25MG) [Concomitant]
  19. MINOXIDIL [Concomitant]
  20. MIRALAX [Concomitant]
  21. MS CONTIN [Concomitant]
  22. NPH INSULIN HUMAN (INSULIN NPH HUMAN) [Concomitant]
  23. OMEPRAZOLE [Concomitant]
  24. OXYCODONE [Concomitant]
  25. OXYCODONE CONTROLLED RELEASE [Concomitant]
  26. PERCOCET-5 [Concomitant]
  27. REGLAN [Concomitant]
  28. SENNA TABLETS (SENNOSIDES) [Concomitant]
  29. SERTRALINE HCL [Concomitant]
  30. SINGULAIR [Concomitant]
  31. TRAZODONE HCL [Concomitant]
  32. VALSARTAN [Concomitant]

REACTIONS (1)
  - MENTAL STATUS CHANGES [None]
